FAERS Safety Report 6313749-0 (Version None)
Quarter: 2009Q3

REPORT INFORMATION
  Report Type: 
  Country: None (occurrence: None)
  Receive Date: 20090818
  Receipt Date: 20080715
  Transmission Date: 20100115
  Serious: No
  Sender: FDA-Public Use
  Company Number: US-BRISTOL-MYERS SQUIBB COMPANY-14263081

PATIENT
  Age: 43 Year
  Sex: Male

DRUGS (4)
  1. REYATAZ [Suspect]
     Indication: HIV INFECTION
     Dates: start: 20041101
  2. ZIAGEN [Suspect]
     Indication: HIV INFECTION
     Dates: start: 20041101
  3. EPIVIR [Suspect]
     Indication: HIV INFECTION
     Dates: start: 20041101
  4. RITONAVIR [Suspect]
     Indication: HIV INFECTION
     Dates: start: 20041101

REACTIONS (1)
  - NEPHROLITHIASIS [None]
